FAERS Safety Report 19843401 (Version 1)
Quarter: 2021Q3

REPORT INFORMATION
  Report Type: Spontaneous
  Country: CN (occurrence: CN)
  Receive Date: 20210917
  Receipt Date: 20210917
  Transmission Date: 20211014
  Serious: Yes (Other)
  Sender: FDA-Public Use
  Company Number: CN-ROCHE-2911243

PATIENT
  Age: 65 Year
  Sex: Male

DRUGS (13)
  1. ETOPOSIDE. [Concomitant]
     Active Substance: ETOPOSIDE
     Indication: METASTASES TO LIVER
  2. CARBOPLATIN. [Concomitant]
     Active Substance: CARBOPLATIN
     Indication: SMALL CELL LUNG CANCER EXTENSIVE STAGE
     Dosage: ON DAY 1, 21 DAYS AS A CYCLE FOR 6 CYCLES
     Dates: start: 20210402
  3. ETOPOSIDE. [Concomitant]
     Active Substance: ETOPOSIDE
     Indication: SMALL CELL LUNG CANCER EXTENSIVE STAGE
     Dosage: ON DAY 1?5, 21 DAYS AS A CYCLE FOR 6 CYCLES
     Dates: start: 20210402
  4. CARBOPLATIN. [Concomitant]
     Active Substance: CARBOPLATIN
     Indication: METASTASES TO LYMPH NODES
  5. ATEZOLIZUMAB. [Suspect]
     Active Substance: ATEZOLIZUMAB
     Indication: METASTASES TO LYMPH NODES
     Dosage: ON DAY 1
     Route: 065
     Dates: start: 2021
  6. ATEZOLIZUMAB. [Suspect]
     Active Substance: ATEZOLIZUMAB
     Indication: METASTASES TO ADRENALS
  7. ETOPOSIDE. [Concomitant]
     Active Substance: ETOPOSIDE
     Indication: METASTASES TO LYMPH NODES
  8. ATEZOLIZUMAB. [Suspect]
     Active Substance: ATEZOLIZUMAB
     Indication: METASTASES TO LIVER
  9. CARBOPLATIN. [Concomitant]
     Active Substance: CARBOPLATIN
     Indication: METASTASES TO LIVER
  10. NIFEDIPINE. [Concomitant]
     Active Substance: NIFEDIPINE
     Indication: HYPERTENSION
     Route: 048
  11. ATEZOLIZUMAB. [Suspect]
     Active Substance: ATEZOLIZUMAB
     Indication: SMALL CELL LUNG CANCER EXTENSIVE STAGE
     Dosage: ON DAY 1, 21 DAYS AS A CYCLE FOR 6 CYCLES
     Route: 041
     Dates: start: 20210402
  12. ETOPOSIDE. [Concomitant]
     Active Substance: ETOPOSIDE
     Indication: METASTASES TO ADRENALS
  13. CARBOPLATIN. [Concomitant]
     Active Substance: CARBOPLATIN
     Indication: METASTASES TO ADRENALS

REACTIONS (2)
  - Myelosuppression [Recovering/Resolving]
  - Pyrexia [Recovering/Resolving]

NARRATIVE: CASE EVENT DATE: 2021
